FAERS Safety Report 7991217-8 (Version None)
Quarter: 2011Q4

REPORT INFORMATION
  Report Type: 
  Country: None (occurrence: None)
  Receive Date: 20111219
  Receipt Date: 20111215
  Transmission Date: 20120403
  Serious: Yes (Other)
  Sender: FDA-Public Use
  Company Number: US-GLAXOSMITHKLINE-A0956213A

PATIENT
  Age: 57 Year
  Sex: Female

DRUGS (2)
  1. PAXIL [Suspect]
     Indication: PANIC DISORDER
     Dosage: 10MG UNKNOWN
     Route: 048
     Dates: start: 19990101
  2. NO CONCURRENT MEDICATION [Concomitant]

REACTIONS (6)
  - AGITATION [None]
  - COORDINATION ABNORMAL [None]
  - PRODUCT QUALITY ISSUE [None]
  - MOTOR DYSFUNCTION [None]
  - SPEECH DISORDER [None]
  - DEPENDENCE [None]
